FAERS Safety Report 12518531 (Version 1)
Quarter: 2016Q2

REPORT INFORMATION
  Report Type: Spontaneous
  Country: BR (occurrence: BR)
  Receive Date: 20160630
  Receipt Date: 20160630
  Transmission Date: 20160815
  Serious: Yes (Congenital Anomaly)
  Sender: FDA-Public Use
  Company Number: BR-VALIDUS PHARMACEUTICALS LLC-BR-2016VAL002140

PATIENT
  Sex: Male
  Weight: 3.48 kg

DRUGS (4)
  1. MISOPROSTOL. [Suspect]
     Active Substance: MISOPROSTOL
     Dosage: 3 DF, UNK
     Route: 064
  2. CARBAMAZEPINE. [Suspect]
     Active Substance: CARBAMAZEPINE
     Indication: FOETAL EXPOSURE DURING PREGNANCY
     Dosage: 200 MG, TID
     Route: 064
  3. MISOPROSTOL. [Suspect]
     Active Substance: MISOPROSTOL
     Indication: FOETAL EXPOSURE DURING PREGNANCY
     Dosage: 2 DF, SINGLE
     Route: 064
  4. VALPROIC ACID. [Suspect]
     Active Substance: VALPROIC ACID
     Indication: FOETAL EXPOSURE DURING PREGNANCY
     Dosage: 250 MG, DAILY
     Route: 064

REACTIONS (14)
  - Arachnoid cyst [Unknown]
  - Hypermetropia [Unknown]
  - Polyhydramnios [Unknown]
  - Anencephaly [Unknown]
  - Respiratory disorder [Unknown]
  - Congenital cystic lung [Unknown]
  - Meningocele [Unknown]
  - Astigmatism [Unknown]
  - Foetal malformation [Unknown]
  - Micrognathia [Unknown]
  - Skull malformation [Unknown]
  - Haemangioma [Unknown]
  - Brain herniation [Unknown]
  - Foetal exposure during pregnancy [Recovered/Resolved]
